FAERS Safety Report 10177677 (Version 1)
Quarter: 2014Q2

REPORT INFORMATION
  Report Type: Spontaneous
  Country: CO (occurrence: CO)
  Receive Date: 20140516
  Receipt Date: 20140516
  Transmission Date: 20141212
  Serious: Yes (Other)
  Sender: FDA-Public Use
  Company Number: CO-BAYER-2014-070493

PATIENT
  Age: 48 Year
  Sex: Male

DRUGS (1)
  1. CIPRO XR [Suspect]
     Indication: URINARY TRACT INFECTION
     Dosage: 1000 DF, UNK
     Route: 048

REACTIONS (2)
  - Haemorrhage [Unknown]
  - Drug ineffective [Unknown]
